FAERS Safety Report 6065770-8 (Version None)
Quarter: 2009Q1

REPORT INFORMATION
  Report Type: 
  Country: None (occurrence: None)
  Receive Date: 20090130
  Receipt Date: 20090122
  Transmission Date: 20090719
  Serious: Yes (Other)
  Sender: FDA-Public Use
  Company Number: 2009SP001618

PATIENT
  Age: 58 Year
  Sex: Female
  Weight: 81.4 kg

DRUGS (7)
  1. BOCEPREVIR      (SCH 503034) [Suspect]
     Indication: HEPATITIS C
     Dosage: 800 MG; TID; PO
     Route: 048
     Dates: start: 20081219
  2. PEG-INTRON [Suspect]
     Indication: HEPATITIS C
     Dosage: 150 MCG; QW; SC
     Route: 058
     Dates: start: 20081121
  3. RIBAVIRIN [Suspect]
     Indication: HEPATITIS C
     Dosage: 1200 MG; QD; PO, 1000 MG; QD; PO, 800 MG; QD; PO
     Route: 048
     Dates: end: 20090119
  4. RIBAVIRIN [Suspect]
     Indication: HEPATITIS C
     Dosage: 1200 MG; QD; PO, 1000 MG; QD; PO, 800 MG; QD; PO
     Route: 048
     Dates: start: 20081121
  5. RIBAVIRIN [Suspect]
     Indication: HEPATITIS C
     Dosage: 1200 MG; QD; PO, 1000 MG; QD; PO, 800 MG; QD; PO
     Route: 048
     Dates: start: 20090113
  6. CENTRUM [Concomitant]
  7. ADVAIR DISKUS 100/50 [Concomitant]

REACTIONS (3)
  - DYSPNOEA EXERTIONAL [None]
  - HAEMOGLOBIN DECREASED [None]
  - PLEURITIC PAIN [None]
